FAERS Safety Report 5442685-7 (Version None)
Quarter: 2007Q3

REPORT INFORMATION
  Report Type: 
  Country: None (occurrence: None)
  Receive Date: 20070904
  Receipt Date: 20070828
  Transmission Date: 20080115
  Serious: Yes (Other)
  Sender: FDA-Public Use
  Company Number: TR-ROXANE LABORATORIES, INC-2007-BP-20005RO

PATIENT
  Age: 4 Year

DRUGS (1)
  1. MIDAZOLAM HCL [Suspect]
     Indication: PREMEDICATION
     Route: 045

REACTIONS (2)
  - FLUSHING [None]
  - URTICARIA [None]
